FAERS Safety Report 5264661-X (Version None)
Quarter: 2007Q1

REPORT INFORMATION
  Report Type: 
  Country: None (occurrence: None)
  Receive Date: 20070314
  Receipt Date: 20070302
  Transmission Date: 20070707
  Serious: Yes (Life-Threatening, Hospitalization)
  Sender: FDA-Public Use
  Company Number: JP-JNJFOC-20061204403

PATIENT
  Sex: Female

DRUGS (9)
  1. RISPERDAL [Suspect]
     Indication: SCHIZOPHRENIA
     Route: 048
  2. HALOPERIDOL [Suspect]
     Indication: SCHIZOPHRENIA
     Route: 048
  3. ARIPIPRAZOLE [Suspect]
     Indication: SCHIZOPHRENIA
     Route: 048
  4. LULLAN [Suspect]
     Indication: SCHIZOPHRENIA
     Route: 048
  5. HIRNAMIN [Suspect]
     Indication: SCHIZOPHRENIA
     Route: 048
  6. ANAFRANIL [Concomitant]
     Indication: SCHIZOPHRENIA
     Route: 048
  7. LORAZEPAM [Concomitant]
     Indication: SCHIZOPHRENIA
     Route: 048
  8. AKINETON [Concomitant]
     Indication: SCHIZOPHRENIA
     Route: 048
  9. ROHYPNOL [Concomitant]
     Indication: SCHIZOPHRENIA
     Route: 048

REACTIONS (2)
  - HYPERPROLACTINAEMIA [None]
  - PULMONARY EMBOLISM [None]
